FAERS Safety Report 8082421-1 (Version None)
Quarter: 2012Q1

REPORT INFORMATION
  Report Type: 
  Country: None (occurrence: None)
  Receive Date: 20120127
  Receipt Date: 20110310
  Transmission Date: 20120608
  Serious: No
  Sender: FDA-Public Use
  Company Number: US-ABBOTT-11P-163-0706213-00

PATIENT
  Sex: Female

DRUGS (4)
  1. HUMIRA [Suspect]
     Indication: PSORIATIC ARTHROPATHY
     Dosage: DAY ONE
     Route: 058
     Dates: start: 20110201
  2. UNKNOWN MEDICATION [Concomitant]
     Indication: BLOOD CHOLESTEROL
  3. UNKNOWN MEDICATION [Concomitant]
     Indication: ANXIETY
  4. HAVE SO MANY DON'T KNOW WHERE LIST IS RIGHT NOW [Concomitant]
     Indication: PRODUCT USED FOR UNKNOWN INDICATION

REACTIONS (1)
  - INJECTION SITE PAIN [None]
